FAERS Safety Report 21243232 (Version 1)
Quarter: 2022Q3

REPORT INFORMATION
  Report Type: Report from Study
  Country: CA (occurrence: CA)
  Receive Date: 20220823
  Receipt Date: 20220823
  Transmission Date: 20221027
  Serious: Yes (Other)
  Sender: FDA-Public Use
  Company Number: CA-JNJFOC-20220457786

PATIENT
  Age: 43 Year
  Sex: Male
  Weight: 95.6 kg

DRUGS (1)
  1. REMICADE [Suspect]
     Active Substance: INFLIXIMAB
     Indication: Sarcoidosis
     Dosage: EXPIRY DATE: 01-OCT-2024
     Route: 042

REACTIONS (6)
  - Lower limb fracture [Recovering/Resolving]
  - Limb injury [Unknown]
  - Peripheral swelling [Unknown]
  - Inflammation [Unknown]
  - COVID-19 [Unknown]
  - Off label use [Unknown]

NARRATIVE: CASE EVENT DATE: 20220101
